FAERS Safety Report 5380400-6 (Version None)
Quarter: 2007Q3

REPORT INFORMATION
  Report Type: 
  Country: None (occurrence: None)
  Receive Date: 20070706
  Receipt Date: 20070611
  Transmission Date: 20080115
  Serious: No
  Sender: FDA-Public Use
  Company Number: A0652841A

PATIENT
  Age: 50 Year
  Sex: Female
  Weight: 92.3 kg

DRUGS (9)
  1. TYKERB [Suspect]
     Indication: BREAST CANCER
     Dosage: 5TAB PER DAY
     Route: 048
     Dates: start: 20070501, end: 20070528
  2. LEXAPRO [Concomitant]
  3. COUMADIN [Concomitant]
  4. HYDROCHLOROTHIAZIDE [Concomitant]
  5. FOLIC ACID [Concomitant]
  6. VALTREX [Concomitant]
  7. CLARITIN [Concomitant]
  8. IMODIUM [Concomitant]
  9. DOXYCYCLINE [Concomitant]

REACTIONS (2)
  - DECREASED APPETITE [None]
  - DIARRHOEA [None]
